FAERS Safety Report 4701577-9 (Version None)
Quarter: 2005Q2

REPORT INFORMATION
  Report Type: 
  Country: None (occurrence: None)
  Receive Date: 20050628
  Receipt Date: 20050614
  Transmission Date: 20051028
  Serious: Yes (Other)
  Sender: FDA-Public Use
  Company Number: 2005AC00903

PATIENT
  Age: 53 Year
  Sex: Male

DRUGS (2)
  1. BUPIVACAINE [Suspect]
     Route: 008
  2. TRIAMCINOLONE [Suspect]

REACTIONS (2)
  - QUADRIPLEGIA [None]
  - SPINAL CORD INFARCTION [None]
